FAERS Safety Report 13304892 (Version 1)
Quarter: 2017Q1

REPORT INFORMATION
  Report Type: Spontaneous
  Country: IT (occurrence: IT)
  Receive Date: 20170308
  Receipt Date: 20170308
  Transmission Date: 20170428
  Serious: Yes (Hospitalization, Other)
  Sender: FDA-Public Use
  Company Number: IT-STRIDES ARCOLAB LIMITED-2017SP003775

PATIENT

DRUGS (9)
  1. LAMOTRIGINE. [Interacting]
     Active Substance: LAMOTRIGINE
     Indication: EPILEPSY
     Dosage: UNK, UNKNOWN
     Route: 065
  2. PARACETAMOL [Interacting]
     Active Substance: ACETAMINOPHEN
     Indication: PYREXIA
     Dosage: 6 G/DAY OR 4 G/DAY
     Route: 065
  3. VITAMIN K [Concomitant]
     Active Substance: PHYTONADIONE
     Indication: TOXICITY TO VARIOUS AGENTS
     Dosage: UNK, UNKNOWN
     Route: 065
  4. PROTON PUMP INHIBITORS [Concomitant]
     Active Substance: UNSPECIFIED INGREDIENT
     Indication: TOXICITY TO VARIOUS AGENTS
     Dosage: UNK, UNKNOWN
     Route: 065
  5. N-ACETYLCYSTEINE [Concomitant]
     Active Substance: ACETYLCYSTEINE
     Indication: TOXICITY TO VARIOUS AGENTS
     Dosage: UNK, UNKNOWN
     Route: 065
  6. VALPROIC ACID. [Concomitant]
     Active Substance: VALPROIC ACID
     Indication: EPILEPSY
     Dosage: UNK, UNKNOWN
     Route: 065
  7. IBUPROFEN. [Suspect]
     Active Substance: IBUPROFEN
     Indication: PYREXIA
     Dosage: UNK, UNKNOWN
     Route: 065
  8. ANTIBIOTICS [Concomitant]
     Active Substance: UNSPECIFIED INGREDIENT
     Indication: TOXICITY TO VARIOUS AGENTS
     Dosage: UNK, UNKNOWN
     Route: 065
  9. TOPIRAMATE. [Concomitant]
     Active Substance: TOPIRAMATE
     Indication: EPILEPSY
     Dosage: UNK, UNKNOWN
     Route: 065

REACTIONS (7)
  - Drug-induced liver injury [Recovered/Resolved]
  - Acute hepatic failure [Recovered/Resolved]
  - Pruritus generalised [Unknown]
  - Lip oedema [Unknown]
  - Rash maculo-papular [Recovered/Resolved]
  - Drug interaction [Unknown]
  - Angular cheilitis [Unknown]
